FAERS Safety Report 5488370-7 (Version None)
Quarter: 2007Q4

REPORT INFORMATION
  Report Type: 
  Country: None (occurrence: None)
  Receive Date: 20071017
  Receipt Date: 20071011
  Transmission Date: 20080405
  Serious: Yes (Other)
  Sender: FDA-Public Use
  Company Number: B0490269A

PATIENT
  Age: 62 Year
  Sex: Male

DRUGS (1)
  1. SEROXAT [Suspect]
     Indication: MENTAL DISORDER
     Route: 048
     Dates: start: 19970901

REACTIONS (13)
  - DEPRESSED MOOD [None]
  - DIZZINESS [None]
  - DRUG WITHDRAWAL SYNDROME [None]
  - EMOTIONAL DISTRESS [None]
  - FEELING ABNORMAL [None]
  - HYPERHIDROSIS [None]
  - PHOTOSENSITIVITY REACTION [None]
  - RASH [None]
  - SELF-INJURIOUS IDEATION [None]
  - SOCIAL AVOIDANT BEHAVIOUR [None]
  - TEARFULNESS [None]
  - TREATMENT NONCOMPLIANCE [None]
  - VISION BLURRED [None]
